FAERS Safety Report 5324821-6 (Version None)
Quarter: 2007Q2

REPORT INFORMATION
  Report Type: 
  Country: None (occurrence: None)
  Receive Date: 20070515
  Receipt Date: 20070510
  Transmission Date: 20071010
  Serious: Yes (Disabling, Other)
  Sender: FDA-Public Use
  Company Number: PHNR2007AU00938

PATIENT
  Age: 61 Year
  Sex: Female

DRUGS (5)
  1. MORPHINE [Concomitant]
  2. ZOMETA [Suspect]
     Indication: MULTIPLE MYELOMA
     Dates: start: 20040501, end: 20060501
  3. ZOMETA [Suspect]
     Dates: start: 20060801
  4. CHEMOTHERAPEUTICS NOS [Concomitant]
  5. STEROIDS NOS [Concomitant]
     Dates: start: 20040601, end: 20060201

REACTIONS (4)
  - BONE DISORDER [None]
  - OSTEONECROSIS [None]
  - PAIN IN JAW [None]
  - TOOTHACHE [None]
